FAERS Safety Report 9721890 (Version 1)
Quarter: 2013Q4

REPORT INFORMATION
  Report Type: Report from Study
  Country: US (occurrence: US)
  Receive Date: 20131201
  Receipt Date: 20131201
  Transmission Date: 20140711
  Serious: Yes (Other)
  Sender: FDA-Public Use
  Company Number: US-ROCHE-1310051

PATIENT
  Sex: 0

DRUGS (4)
  1. RIBAVIRIN [Suspect]
     Indication: HEPATITIS C
     Dosage: FOR 12 WEEKS FOR MODERATE RENAL IMPAIRMENT
     Route: 065
  2. RIBAVIRIN [Suspect]
     Dosage: FOR 12 WEEKS FOR SEVERE RENAL IMPAIRMENT
     Route: 065
  3. RIBAVIRIN [Suspect]
     Dosage: FOR PATIENT WITH ESRD FOR 12 WEEKS
     Route: 065
  4. PEG-INTERFERON ALFA 2A [Suspect]
     Indication: HEPATITIS C
     Route: 065

REACTIONS (4)
  - Anaemia [Unknown]
  - Neutrophil count decreased [Unknown]
  - Platelet count decreased [Unknown]
  - Mental status changes [Unknown]
